FAERS Safety Report 6171382-8 (Version None)
Quarter: 2009Q2

REPORT INFORMATION
  Report Type: 
  Country: None (occurrence: None)
  Receive Date: 20090429
  Receipt Date: 20090417
  Transmission Date: 20091009
  Serious: Yes (Other)
  Sender: FDA-Public Use
  Company Number: JP-PFIZER INC-2009194187

PATIENT

DRUGS (3)
  1. ZYVOX [Suspect]
     Indication: STAPHYLOCOCCAL BACTERAEMIA
     Dosage: 1200 MG/DAY
     Route: 042
     Dates: start: 20090323, end: 20090330
  2. PREDONINE [Suspect]
     Indication: DERMATITIS EXFOLIATIVE
     Route: 048
  3. NEORAL [Concomitant]

REACTIONS (3)
  - HAEMORRHAGE SUBCUTANEOUS [None]
  - INFUSION SITE EXTRAVASATION [None]
  - SKIN EROSION [None]
